FAERS Safety Report 24592637 (Version 1)
Quarter: 2024Q4

REPORT INFORMATION
  Report Type: Spontaneous
  Country: US (occurrence: US)
  Receive Date: 20241108
  Receipt Date: 20241108
  Transmission Date: 20250115
  Serious: Yes (Other)
  Sender: Kanchan Healthcare
  Company Number: US-Kanchan Healthcare INC-2164706

PATIENT
  Age: 79 Year
  Sex: Female
  Weight: 43.182 kg

DRUGS (10)
  1. ETHAMBUTOL HYDROCHLORIDE [Suspect]
     Active Substance: ETHAMBUTOL HYDROCHLORIDE
     Indication: Mycobacterium avium complex infection
     Dates: start: 2013, end: 20240401
  2. ALBUTEROL [Concomitant]
     Active Substance: ALBUTEROL
  3. VITAMIN D [Concomitant]
     Active Substance: VITAMIN D NOS
  4. SODIUM CHLORIDE [Concomitant]
     Active Substance: SODIUM CHLORIDE
  5. RIFAMPIN [Concomitant]
     Active Substance: RIFAMPIN
  6. PROMETHAZINE HYDROCHLORIDE AND DEXTROMETHORPHAN HYDROBROMIDE [Concomitant]
     Active Substance: DEXTROMETHORPHAN HYDROBROMIDE\PROMETHAZINE HYDROCHLORIDE
  7. CLOFAZIMINE [Concomitant]
     Active Substance: CLOFAZIMINE
  8. IBUPROFEN [Concomitant]
     Active Substance: IBUPROFEN
  9. BEDAQUILINE FUMARATE [Concomitant]
     Active Substance: BEDAQUILINE FUMARATE
  10. ASPIRIN [Concomitant]
     Active Substance: ASPIRIN

REACTIONS (2)
  - Neuropathy peripheral [Recovering/Resolving]
  - Product use in unapproved indication [Unknown]
